FAERS Safety Report 8442730-0 (Version None)
Quarter: 2012Q2

REPORT INFORMATION
  Report Type: 
  Country: None (occurrence: None)
  Receive Date: 20120615
  Receipt Date: 20120605
  Transmission Date: 20120825
  Serious: No
  Sender: FDA-Public Use
  Company Number: US-ASTRAZENECA-2012SE15476

PATIENT
  Age: 61 Year
  Sex: Female
  Weight: 63.5 kg

DRUGS (7)
  1. SEROQUEL [Suspect]
     Indication: SLEEP DISORDER
     Route: 048
  2. FELODIPINE [Concomitant]
     Indication: HYPERTENSION
     Dosage: DAILY
     Route: 048
  3. COPEGUS [Concomitant]
     Indication: HEPATITIS C
     Route: 048
     Dates: start: 20110101
  4. SEROQUEL [Suspect]
     Dosage: 25 MG AT NIGHT AS NEEDED
     Route: 048
  5. BENAZEPRIL HYDROCHLORIDE [Concomitant]
     Indication: HYPERTENSION
     Dosage: DAILY
     Route: 048
  6. PEGINTERFERON ALFA-2A [Concomitant]
     Indication: HEPATITIS C
     Dates: start: 20110101
  7. SEROQUEL [Suspect]
     Route: 048

REACTIONS (17)
  - IMMUNE SYSTEM DISORDER [None]
  - ALOPECIA [None]
  - INSOMNIA [None]
  - FEELING ABNORMAL [None]
  - UNDERWEIGHT [None]
  - INCREASED APPETITE [None]
  - OFF LABEL USE [None]
  - SLEEP DISORDER [None]
  - THERAPEUTIC RESPONSE UNEXPECTED [None]
  - FATIGUE [None]
  - BREAST MASS [None]
  - DRUG DOSE OMISSION [None]
  - ANAEMIA [None]
  - HYPOAESTHESIA TEETH [None]
  - AGITATION [None]
  - MALAISE [None]
  - RESTLESSNESS [None]
